FAERS Safety Report 24218282 (Version 1)
Quarter: 2024Q3

REPORT INFORMATION
  Report Type: Spontaneous
  Country: CA (occurrence: CA)
  Receive Date: 20240816
  Receipt Date: 20240816
  Transmission Date: 20241016
  Serious: Yes (Other)
  Sender: TEVA
  Company Number: CA-ABBVIE-5871415

PATIENT
  Age: 67 Year
  Sex: Female

DRUGS (10)
  1. ACITRETIN [Suspect]
     Active Substance: ACITRETIN
     Indication: Product used for unknown indication
     Route: 048
  2. ACITRETIN [Suspect]
     Active Substance: ACITRETIN
     Indication: Product used for unknown indication
     Route: 048
  3. CALCIPOTRIENE [Concomitant]
     Active Substance: CALCIPOTRIENE
     Indication: Product used for unknown indication
  4. APREMILAST [Concomitant]
     Active Substance: APREMILAST
     Indication: Product used for unknown indication
  5. CLOBETASOL [Concomitant]
     Active Substance: CLOBETASOL
     Indication: Product used for unknown indication
  6. METHOTREXATE [Concomitant]
     Active Substance: METHOTREXATE
     Indication: Product used for unknown indication
  7. BETADERM [Concomitant]
     Active Substance: BETAMETHASONE VALERATE
     Indication: Product used for unknown indication
  8. DUOBRII [Concomitant]
     Active Substance: HALOBETASOL PROPIONATE\TAZAROTENE
     Indication: Product used for unknown indication
  9. ALITRETINOIN [Concomitant]
     Active Substance: ALITRETINOIN
     Indication: Product used for unknown indication
  10. GUSELKUMAB [Concomitant]
     Active Substance: GUSELKUMAB
     Indication: Product used for unknown indication

REACTIONS (6)
  - Bowen^s disease [Unknown]
  - Squamous cell carcinoma [Unknown]
  - Contraindicated product administered [Unknown]
  - Keratoacanthoma [Unknown]
  - Bowenoid papulosis [Unknown]
  - Lichenoid keratosis [Unknown]
